FAERS Safety Report 6293731-2 (Version None)
Quarter: 2009Q3

REPORT INFORMATION
  Report Type: 
  Country: None (occurrence: None)
  Receive Date: 20090803
  Receipt Date: 20090723
  Transmission Date: 20100115
  Serious: Yes (Hospitalization)
  Sender: FDA-Public Use
  Company Number: AU-ASTRAZENECA-2009SE05581

PATIENT
  Age: 76 Year
  Sex: Female
  Weight: 65 kg

DRUGS (2)
  1. ATACAND HCT [Suspect]
     Indication: ESSENTIAL HYPERTENSION
     Dosage: 16/12.5 MG 1 DOSE UNSPECIFIED DAILY
     Route: 048
  2. ATENOLOL [Interacting]
     Indication: ESSENTIAL HYPERTENSION
     Route: 048

REACTIONS (2)
  - DRUG INTERACTION [None]
  - LOSS OF CONSCIOUSNESS [None]
